FAERS Safety Report 8499692-X (Version None)
Quarter: 2012Q3

REPORT INFORMATION
  Report Type: 
  Country: None (occurrence: None)
  Receive Date: 20120710
  Receipt Date: 20120709
  Transmission Date: 20120928
  Serious: Yes (Death, Other)
  Sender: FDA-Public Use
  Company Number: CA-PFIZER INC-CA-WYE-G03058709

PATIENT
  Age: 53 Year
  Sex: Male

DRUGS (2)
  1. WELLBUTRIN [Concomitant]
     Dosage: UNK
  2. EFFEXOR XR [Suspect]
     Indication: ANXIETY DISORDER
     Dosage: UNK

REACTIONS (11)
  - HAEMOTHORAX [None]
  - RIB FRACTURE [None]
  - DYSPNOEA [None]
  - LACERATION [None]
  - DRUG LEVEL ABOVE THERAPEUTIC [None]
  - HYPERTROPHIC CARDIOMYOPATHY [None]
  - EYE MOVEMENT DISORDER [None]
  - CONFUSIONAL STATE [None]
  - ERYTHEMA [None]
  - HYPERHIDROSIS [None]
  - FALL [None]
